FAERS Safety Report 16628506 (Version 1)
Quarter: 2019Q3

REPORT INFORMATION
  Report Type: Spontaneous
  Country: US (occurrence: US)
  Receive Date: 20190725
  Receipt Date: 20190725
  Transmission Date: 20191004
  Serious: No
  Sender: FDA-Public Use
  Company Number: US-009507513-1907USA013054

PATIENT
  Age: 79 Year
  Sex: Female

DRUGS (2)
  1. INTRON A [Suspect]
     Active Substance: INTERFERON ALFA-2B
     Indication: ECZEMA NUMMULAR
     Dosage: (STRENGTH: 6 MMU/ML),3 MILLION UNIT, 3 TIMES A WEEK
     Route: 058
     Dates: start: 20190613
  2. INTRON A [Suspect]
     Active Substance: INTERFERON ALFA-2B
     Indication: CUTANEOUS T-CELL LYMPHOMA

REACTIONS (6)
  - Skin exfoliation [Unknown]
  - Skin mass [Unknown]
  - Product use in unapproved indication [Unknown]
  - Burning sensation [Unknown]
  - Peripheral swelling [Unknown]
  - Pruritus [Unknown]

NARRATIVE: CASE EVENT DATE: 201907
